FAERS Safety Report 13292626 (Version 11)
Quarter: 2020Q4

REPORT INFORMATION
  Report Type: Spontaneous
  Country: US (occurrence: US)
  Receive Date: 20170303
  Receipt Date: 20201223
  Transmission Date: 20210113
  Serious: Yes (Hospitalization, Other)
  Sender: FDA-Public Use
  Company Number: US-PFIZER INC-2017092178

PATIENT
  Age: 56 Year
  Sex: Female

DRUGS (3)
  1. LYRICA [Suspect]
     Active Substance: PREGABALIN
     Indication: LUMBAR RADICULOPATHY
  2. LYRICA [Suspect]
     Active Substance: PREGABALIN
     Indication: PAIN
  3. LYRICA [Suspect]
     Active Substance: PREGABALIN
     Indication: NEURALGIA
     Dosage: 150 MG, 2X/DAY (FOR 30 DAYS)
     Route: 048
     Dates: start: 201606

REACTIONS (10)
  - Diabetes mellitus [Unknown]
  - Vomiting [Recovered/Resolved]
  - Uterine leiomyoma [Unknown]
  - Muscle spasms [Unknown]
  - Neuralgia [Unknown]
  - Gastroenteritis [Unknown]
  - Dehydration [Recovered/Resolved]
  - Influenza [Recovered/Resolved]
  - Chest pain [Unknown]
  - Hypertension [Unknown]

NARRATIVE: CASE EVENT DATE: 2016
